FAERS Safety Report 11752246 (Version 2)
Quarter: 2015Q4

REPORT INFORMATION
  Report Type: Spontaneous
  Country: US (occurrence: US)
  Receive Date: 20151118
  Receipt Date: 20151221
  Transmission Date: 20160304
  Serious: No
  Sender: FDA-Public Use
  Company Number: US-GLAXOSMITHKLINE-US2015161127

PATIENT
  Age: 77 Year
  Sex: Male

DRUGS (5)
  1. ANORO ELLIPTA [Suspect]
     Active Substance: UMECLIDINIUM BROMIDE\VILANTEROL TRIFENATATE
     Indication: HYPERSENSITIVITY
     Dosage: 1 PUFF(S), QD
     Dates: start: 201511
  2. ASMANEX [Concomitant]
     Active Substance: MOMETASONE FUROATE
  3. PREDNISONE. [Concomitant]
     Active Substance: PREDNISONE
  4. PROTONIX (PANTOPRAZOLE SODIUM) [Concomitant]
  5. ANORO ELLIPTA [Suspect]
     Active Substance: UMECLIDINIUM BROMIDE\VILANTEROL TRIFENATATE
     Indication: DYSPNOEA
     Dosage: 1 PUFF(S), QD
     Route: 055
     Dates: start: 201510

REACTIONS (1)
  - Cough [Recovered/Resolved]

NARRATIVE: CASE EVENT DATE: 201510
